FAERS Safety Report 11894021 (Version 1)
Quarter: 2016Q1

REPORT INFORMATION
  Report Type: Spontaneous
  Country: AU (occurrence: AU)
  Receive Date: 20160107
  Receipt Date: 20160107
  Transmission Date: 20160526
  Serious: Yes (Hospitalization)
  Sender: FDA-Public Use
  Company Number: AU-STRIDES ARCOLAB LIMITED-2015SP002588

PATIENT

DRUGS (4)
  1. DENOSUMAB [Concomitant]
     Active Substance: DENOSUMAB
     Indication: PRODUCT USED FOR UNKNOWN INDICATION
     Dosage: 60 MG, SINGLE
     Route: 058
  2. CALCIUM GLUCONATE. [Suspect]
     Active Substance: CALCIUM GLUCONATE
     Indication: TETANY
     Dosage: UNK
     Route: 042
  3. CALCIUM CARBONATE. [Suspect]
     Active Substance: CALCIUM CARBONATE
     Indication: TETANY
     Dosage: 3 G, TID
  4. CALCITRIOL. [Suspect]
     Active Substance: CALCITRIOL
     Indication: TETANY
     Dosage: 0.5 ?G, QID

REACTIONS (2)
  - Hypercalcaemia [Unknown]
  - Mental status changes [Unknown]
